FAERS Safety Report 7250275-9 (Version None)
Quarter: 2011Q1

REPORT INFORMATION
  Report Type: 
  Country: None (occurrence: None)
  Receive Date: 20110118
  Receipt Date: 20110103
  Transmission Date: 20110831
  Serious: Yes (Hospitalization)
  Sender: FDA-Public Use
  Company Number: 2010004910

PATIENT
  Age: 69 Year
  Sex: Male

DRUGS (2)
  1. SMECTA [Concomitant]
  2. TARCEVA [Suspect]
     Indication: LUNG NEOPLASM MALIGNANT
     Dosage: (150 MG, QD), ORAL
     Route: 048
     Dates: start: 20100901

REACTIONS (3)
  - AMNESIA [None]
  - ABNORMAL BEHAVIOUR [None]
  - CONFUSIONAL STATE [None]
